FAERS Safety Report 5918848-0 (Version None)
Quarter: 2008Q4

REPORT INFORMATION
  Report Type: 
  Country: None (occurrence: None)
  Receive Date: 20081015
  Receipt Date: 20081009
  Transmission Date: 20090506
  Serious: No
  Sender: FDA-Public Use
  Company Number: US-AVENTIS-200816801US

PATIENT
  Sex: Female

DRUGS (1)
  1. OPTICLIK (INSULIN INJECTION PEN) [Suspect]

REACTIONS (2)
  - DEVICE MALFUNCTION [None]
  - PRODUCT QUALITY ISSUE [None]
